FAERS Safety Report 16522948 (Version 9)
Quarter: 2020Q3

REPORT INFORMATION
  Report Type: Report from Study
  Country: CO (occurrence: CO)
  Receive Date: 20190703
  Receipt Date: 20200912
  Transmission Date: 20201104
  Serious: Yes (Death, Hospitalization, Other)
  Sender: FDA-Public Use
  Company Number: PHHY2019CO122782

PATIENT
  Age: 19 Year
  Sex: Female

DRUGS (10)
  1. REVOLADE [Suspect]
     Active Substance: ELTROMBOPAG
     Indication: APLASTIC ANAEMIA
     Dosage: 75 MG, QD
     Route: 048
     Dates: start: 201807
  2. FOLIC ACID. [Concomitant]
     Active Substance: FOLIC ACID
     Indication: PRODUCT USED FOR UNKNOWN INDICATION
     Route: 065
  3. REVOLADE [Suspect]
     Active Substance: ELTROMBOPAG
     Dosage: 100 MG, QD
     Route: 048
     Dates: start: 201808
  4. CICLOSPORIN [Suspect]
     Active Substance: CYCLOSPORINE
     Indication: PRODUCT USED FOR UNKNOWN INDICATION
     Route: 065
  5. EXJADE [Suspect]
     Active Substance: DEFERASIROX
     Indication: IRON OVERLOAD
     Dosage: 500 MG, QD
     Route: 065
     Dates: start: 201807
  6. TRIMETHOPRIM. [Concomitant]
     Active Substance: TRIMETHOPRIM
     Indication: PRODUCT USED FOR UNKNOWN INDICATION
     Route: 065
  7. ACYCLOVIR. [Concomitant]
     Active Substance: ACYCLOVIR
     Indication: PRODUCT USED FOR UNKNOWN INDICATION
     Route: 065
  8. REVOLADE [Suspect]
     Active Substance: ELTROMBOPAG
     Dosage: 360 MG
     Route: 048
  9. FLUCONAZOLE. [Concomitant]
     Active Substance: FLUCONAZOLE
     Indication: PRODUCT USED FOR UNKNOWN INDICATION
     Route: 065
  10. JADENU [Suspect]
     Active Substance: DEFERASIROX
     Indication: APLASTIC ANAEMIA
     Dosage: 720 MG, QD
     Route: 048
     Dates: start: 201808

REACTIONS (16)
  - Gingival bleeding [Unknown]
  - Vision blurred [Unknown]
  - Epistaxis [Unknown]
  - Aplastic anaemia [Unknown]
  - Death [Fatal]
  - Haemoglobin decreased [Unknown]
  - Product dose omission issue [Unknown]
  - Vaginal haemorrhage [Unknown]
  - Platelet count decreased [Unknown]
  - Pyrexia [Recovered/Resolved]
  - Rash erythematous [Not Recovered/Not Resolved]
  - General physical health deterioration [Unknown]
  - Headache [Recovered/Resolved]
  - Incorrect dose administered [Unknown]
  - Gait disturbance [Recovered/Resolved]
  - Malaise [Unknown]

NARRATIVE: CASE EVENT DATE: 20200814
